FAERS Safety Report 4352222-6 (Version None)
Quarter: 2004Q2

REPORT INFORMATION
  Report Type: 
  Country: None (occurrence: None)
  Receive Date: 20040504
  Receipt Date: 20040423
  Transmission Date: 20050107
  Serious: Yes (Hospitalization)
  Sender: FDA-Public Use
  Company Number: PHBS2004JP05550

PATIENT
  Age: 25 Year
  Sex: Male

DRUGS (5)
  1. VOLTAREN [Suspect]
     Indication: PYREXIA
     Route: 054
     Dates: start: 20030101, end: 20030101
  2. LENDORM [Concomitant]
     Dates: start: 20030101, end: 20030101
  3. LEPETAN [Concomitant]
     Dates: start: 20030101, end: 20030101
  4. FARMORUBICIN [Concomitant]
     Dates: start: 20030101, end: 20030101
  5. GASTER [Suspect]

REACTIONS (1)
  - RHABDOMYOLYSIS [None]
